FAERS Safety Report 4345820-7 (Version None)
Quarter: 2004Q2

REPORT INFORMATION
  Report Type: 
  Country: None (occurrence: None)
  Receive Date: 20040424
  Receipt Date: 20030926
  Transmission Date: 20050107
  Serious: Yes (Hospitalization, Disabling, Other)
  Sender: FDA-Public Use
  Company Number: US-MERCK-0309USA03139

PATIENT
  Age: 41 Year
  Sex: Female
  Weight: 87 kg

DRUGS (14)
  1. DARVOCET-N 100 [Concomitant]
     Route: 065
  2. WELLBUTRIN [Concomitant]
     Route: 065
  3. CARISOPRODOL [Concomitant]
     Route: 065
  4. DIFLUNISAL [Concomitant]
     Route: 065
  5. PREMARIN [Concomitant]
     Route: 065
  6. ESTRATEST [Concomitant]
     Route: 065
  7. ALLEGRA [Concomitant]
     Route: 065
  8. REBETRON [Concomitant]
     Route: 065
     Dates: start: 19991020, end: 19991001
  9. NORTRIPTYLINE [Concomitant]
     Route: 065
  10. ACCUPRIL [Concomitant]
     Route: 065
  11. REBETOL [Concomitant]
     Route: 065
  12. VIOXX [Suspect]
     Route: 048
     Dates: start: 19990601, end: 19991001
  13. VIOXX [Suspect]
     Route: 048
     Dates: start: 19990101
  14. ULTRAM [Concomitant]
     Route: 065

REACTIONS (24)
  - ABDOMINAL PAIN UPPER [None]
  - ASTHMA [None]
  - CARDIOMEGALY [None]
  - CAROTID ARTERY OCCLUSION [None]
  - CEREBROVASCULAR ACCIDENT [None]
  - CHEST PAIN [None]
  - CONSTIPATION [None]
  - DEPRESSION [None]
  - DRUG ABUSER [None]
  - EXCORIATION [None]
  - HYPERLIPIDAEMIA [None]
  - ISCHAEMIC STROKE [None]
  - MELAENA [None]
  - MICROCYTIC ANAEMIA [None]
  - ORTHOSTATIC HYPOTENSION [None]
  - PAIN IN EXTREMITY [None]
  - PULMONARY CONGESTION [None]
  - SKIN ULCER [None]
  - SPINAL COMPRESSION FRACTURE [None]
  - SUICIDAL IDEATION [None]
  - TIBIA FRACTURE [None]
  - URINARY TRACT INFECTION [None]
  - VASCULITIS [None]
  - WEIGHT INCREASED [None]
